FAERS Safety Report 22762574 (Version 5)
Quarter: 2025Q1

REPORT INFORMATION
  Report Type: Spontaneous
  Country: GB (occurrence: GB)
  Receive Date: 20230728
  Receipt Date: 20250210
  Transmission Date: 20250409
  Serious: Yes (Other)
  Sender: TEVA
  Company Number: GB-Bristol Laboratories Ltd-BLL202307-000085

PATIENT
  Age: 62 Year
  Sex: Female
  Weight: 75 kg

DRUGS (7)
  1. AMLODIPINE [Suspect]
     Active Substance: AMLODIPINE BESYLATE
     Indication: Blood pressure increased
     Route: 065
     Dates: start: 20191129
  2. BISOPROLOL FUMARATE [Suspect]
     Active Substance: BISOPROLOL FUMARATE
     Indication: Blood pressure increased
     Route: 065
  3. METOPROLOL [Suspect]
     Active Substance: METOPROLOL
     Indication: Blood pressure increased
     Route: 065
  4. BISOPROLOL [Concomitant]
     Active Substance: BISOPROLOL
     Indication: Product used for unknown indication
     Dosage: 50 MG, QD, 50 MG DAILY
  5. RAMIPRIL [Suspect]
     Active Substance: RAMIPRIL
     Indication: Blood pressure increased
     Route: 048
     Dates: start: 2019
  6. INFLUENZA VIRUS VACCINE [Concomitant]
     Active Substance: INFLUENZA VIRUS VACCINE
     Indication: Immunisation
     Route: 065
  7. METOPROLOL [Concomitant]
     Active Substance: METOPROLOL
     Indication: Product used for unknown indication
     Dosage: 75 MG, BID (50 MG, IN MORNING, 25 MG , IN EVENING)

REACTIONS (8)
  - Cardiac flutter [Unknown]
  - Heart rate irregular [Unknown]
  - Tachycardia [Not Recovered/Not Resolved]
  - Hypotension [Not Recovered/Not Resolved]
  - Product prescribing error [Unknown]
  - Cardiac disorder [Unknown]
  - Feeling abnormal [Unknown]
  - Heart rate increased [Unknown]
